FAERS Safety Report 6148153-1 (Version None)
Quarter: 2009Q2

REPORT INFORMATION
  Report Type: 
  Country: None (occurrence: None)
  Receive Date: 20090408
  Receipt Date: 20090401
  Transmission Date: 20091009
  Serious: Yes (Other)
  Sender: FDA-Public Use
  Company Number: US-JNJCH-2009009062

PATIENT
  Age: 14 Year
  Sex: Male

DRUGS (1)
  1. BENADRYL ALLERGY + COLD W/ PE [Suspect]
     Indication: DRUG USE FOR UNKNOWN INDICATION
     Dosage: TEXT:14 PILLS
     Route: 048

REACTIONS (3)
  - ACCIDENTAL EXPOSURE [None]
  - HALLUCINATION, VISUAL [None]
  - VOMITING [None]
